FAERS Safety Report 15680750 (Version 1)
Quarter: 2018Q4

REPORT INFORMATION
  Report Type: Spontaneous
  Country: US (occurrence: US)
  Receive Date: 20181120
  Receipt Date: 20181120
  Transmission Date: 20190205
  Serious: Yes (Hospitalization)
  Sender: FDA-Public Use
  Company Number: None

PATIENT
  Age: 82 Year
  Sex: Male

DRUGS (15)
  1. ASPIRIN 81MG [Concomitant]
     Active Substance: ASPIRIN
  2. CARVEDILOL 12.5MG [Concomitant]
     Active Substance: CARVEDILOL
  3. CLOPIDOGREL [Concomitant]
     Active Substance: CLOPIDOGREL BISULFATE
  4. CYCLOBENZAPR 10MG [Concomitant]
  5. ATORVASTATIN 10MG [Concomitant]
     Active Substance: ATORVASTATIN
  6. LASIX 20MG [Concomitant]
  7. ALBUTEROL 0.083% [Concomitant]
  8. COREG 12.5MG [Concomitant]
  9. OMEGA-3 1000MG [Concomitant]
  10. PERCOCET 5-325MG [Concomitant]
  11. CAPECITABINE. [Suspect]
     Active Substance: CAPECITABINE
     Indication: COLON CANCER
     Dosage: ?          OTHER FREQUENCY:BID ON/OFF 7 DAYS;?
     Route: 048
     Dates: start: 20170729
  12. ISOSORB 60MG [Concomitant]
  13. SYMBICORT 160-4.5 [Concomitant]
  14. FLUTICASON 50MCG [Concomitant]
  15. VITAMIN D3 1000UNIT [Concomitant]

REACTIONS (1)
  - Myocardial infarction [None]

NARRATIVE: CASE EVENT DATE: 20181112
